FAERS Safety Report 7455058-2 (Version None)
Quarter: 2011Q2

REPORT INFORMATION
  Report Type: 
  Country: None (occurrence: None)
  Receive Date: 20110503
  Receipt Date: 20110420
  Transmission Date: 20111010
  Serious: Yes (Death, Life-Threatening, Hospitalization)
  Sender: FDA-Public Use
  Company Number: PL-BRISTOL-MYERS SQUIBB COMPANY-15687817

PATIENT
  Age: 66 Year
  Sex: Female
  Weight: 61 kg

DRUGS (11)
  1. DEXAVEN [Concomitant]
     Dates: start: 20110401, end: 20110401
  2. CALCIUM LACTATE [Concomitant]
     Route: 042
     Dates: start: 20110401, end: 20110401
  3. KETONAL [Concomitant]
     Dates: start: 20110401, end: 20110401
  4. GLUCOSE [Concomitant]
     Route: 042
     Dates: start: 20110401, end: 20110401
  5. FRAGMIN [Concomitant]
     Dates: start: 20110401, end: 20110401
  6. METOPROLOL SUCCINATE [Concomitant]
     Dates: start: 20110401, end: 20110401
  7. MAGNESIUM SULFATE [Concomitant]
     Route: 042
     Dates: start: 20110401, end: 20110401
  8. DOCETAXEL [Suspect]
     Indication: OVARIAN CANCER
     Route: 042
     Dates: start: 20110118, end: 20110322
  9. CEFUROXIME SODIUM [Concomitant]
     Dates: start: 20110401, end: 20110401
  10. SODIUM CHLORIDE [Concomitant]
     Route: 042
     Dates: start: 20110401, end: 20110401
  11. CARBOPLATIN [Suspect]
     Indication: OVARIAN CANCER
     Route: 042
     Dates: start: 20110118, end: 20110322

REACTIONS (12)
  - LEUKOPENIA [None]
  - CHEST X-RAY ABNORMAL [None]
  - THROMBOCYTOPENIA [None]
  - HYPOTENSION [None]
  - MULTI-ORGAN FAILURE [None]
  - TACHYCARDIA [None]
  - RESPIRATORY ARREST [None]
  - HYPONATRAEMIA [None]
  - BLOOD CREATININE INCREASED [None]
  - FEBRILE NEUTROPENIA [None]
  - NEUTROPENIA [None]
  - RESPIRATORY FAILURE [None]
